FAERS Safety Report 15868049 (Version 2)
Quarter: 2019Q2

REPORT INFORMATION
  Report Type: Spontaneous
  Country: US (occurrence: US)
  Receive Date: 20190125
  Receipt Date: 20190408
  Transmission Date: 20190711
  Serious: Yes (Other)
  Sender: FDA-Public Use
  Company Number: US-BEH-2019098683

PATIENT
  Age: 30 Year
  Sex: Female

DRUGS (2)
  1. HIZENTRA [Suspect]
     Active Substance: HUMAN IMMUNOGLOBULIN G
     Indication: IMMUNODEFICIENCY COMMON VARIABLE
     Dosage: 8 G, QW
     Route: 058
     Dates: start: 20170120
  2. LEVAQUIN [Suspect]
     Active Substance: LEVOFLOXACIN
     Indication: PSEUDOMONAS INFECTION
     Route: 065

REACTIONS (5)
  - Unevaluable event [Unknown]
  - Bronchitis [Unknown]
  - Sinusitis [Unknown]
  - Pseudomonas infection [Unknown]
  - Tooth infection [Unknown]

NARRATIVE: CASE EVENT DATE: 201811
